FAERS Safety Report 10485376 (Version 1)
Quarter: 2014Q3

REPORT INFORMATION
  Report Type: Report from Study
  Country: BR (occurrence: BR)
  Receive Date: 20140930
  Receipt Date: 20140930
  Transmission Date: 20150326
  Serious: Yes (Hospitalization, Other)
  Sender: FDA-Public Use
  Company Number: BR-ABBVIE-14K-020-1288358-00

PATIENT
  Age: 73 Year
  Sex: Female
  Weight: 90 kg

DRUGS (9)
  1. ROSUCOR [Concomitant]
     Active Substance: ROSUVASTATIN CALCIUM
     Indication: CAROTID ARTERY DISEASE
     Dosage: AT NIGHT
     Route: 048
     Dates: end: 201403
  2. UNSPECIFIED MAGISTRAL FORMULA [Concomitant]
     Indication: VITAMIN SUPPLEMENTATION
     Dosage: VITAMIN B12, VITAMIN A
     Route: 048
     Dates: start: 201407
  3. HUMIRA [Suspect]
     Active Substance: ADALIMUMAB
     Indication: RHEUMATOID ARTHRITIS
     Route: 058
     Dates: start: 20091212
  4. ALDAZIDA [Concomitant]
     Indication: BLOOD PRESSURE ABNORMAL
     Dosage: IN THE MORNING
     Route: 048
  5. ROSUCOR [Concomitant]
     Active Substance: ROSUVASTATIN CALCIUM
  6. LOSARTAN [Concomitant]
     Active Substance: LOSARTAN
     Indication: BLOOD PRESSURE ABNORMAL
     Dosage: IN THE MORNING
     Route: 048
  7. ALDAZIDA [Concomitant]
     Indication: DIURETIC THERAPY
  8. GLIFAGE [Concomitant]
     Active Substance: METFORMIN HYDROCHLORIDE
     Indication: DIABETES MELLITUS
     Dosage: AT NIGHT
     Route: 048
     Dates: start: 2012
  9. LINSEED OIL [Concomitant]
     Active Substance: LINSEED OIL
     Indication: VITAMIN SUPPLEMENTATION
     Route: 048
     Dates: start: 201407

REACTIONS (10)
  - Pneumonia [Recovered/Resolved]
  - Lung infection [Unknown]
  - Bursitis [Recovered/Resolved]
  - Carotid artery disease [Unknown]
  - Incision site hypoaesthesia [Recovering/Resolving]
  - Abdominal pain upper [Not Recovered/Not Resolved]
  - Varicose vein [Unknown]
  - Cough [Not Recovered/Not Resolved]
  - Tachycardia [Unknown]
  - Pneumonia [Unknown]

NARRATIVE: CASE EVENT DATE: 2012
